FAERS Safety Report 5495405-4 (Version None)
Quarter: 2007Q4

REPORT INFORMATION
  Report Type: 
  Country: None (occurrence: None)
  Receive Date: 20071024
  Receipt Date: 20071015
  Transmission Date: 20080405
  Serious: Yes (Other)
  Sender: FDA-Public Use
  Company Number: BR-GENENTECH-250013

PATIENT
  Sex: Female

DRUGS (1)
  1. RITUXAN [Suspect]
     Indication: PURPURA
     Route: 042
     Dates: start: 20070810, end: 20070831

REACTIONS (1)
  - THROMBOCYTOPENIA [None]
